FAERS Safety Report 11680846 (Version 2)
Quarter: 2015Q4

REPORT INFORMATION
  Report Type: Spontaneous
  Country: US (occurrence: US)
  Receive Date: 20151029
  Receipt Date: 20151207
  Transmission Date: 20160304
  Serious: Yes (Hospitalization)
  Sender: FDA-Public Use
  Company Number: US-HOSPIRA-3051737

PATIENT
  Age: 83 Year
  Sex: Male
  Weight: 73.9 kg

DRUGS (21)
  1. DEXAMETHASONE. [Concomitant]
     Active Substance: DEXAMETHASONE
     Indication: CHEMOTHERAPY
  2. ONDANSETRON HYDROCHLORIDE. [Concomitant]
     Active Substance: ONDANSETRON HYDROCHLORIDE
     Indication: NAUSEA
     Dosage: EVERY 8 HOURS AS NEEDED
     Route: 048
     Dates: start: 20150814
  3. ONDANSETRON HYDROCHLORIDE. [Concomitant]
     Active Substance: ONDANSETRON HYDROCHLORIDE
     Indication: PREMEDICATION
     Dosage: 30 TO 60 MIN PRIOR TO CHEMOTHERAPY
     Route: 048
     Dates: start: 20150813
  4. LEVOTHYROXINE SODIUM. [Concomitant]
     Active Substance: LEVOTHYROXINE SODIUM
     Indication: HYPOTHYROIDISM
     Route: 048
  5. DILTIAZEM HCL CD [Concomitant]
     Active Substance: DILTIAZEM HYDROCHLORIDE
     Indication: PROPHYLAXIS
  6. BENZATROPINE MESILATE [Concomitant]
     Active Substance: BENZTROPINE
     Indication: PREMEDICATION
     Dosage: 30 TO 60 MIN PRIOR RO CHEMOTHERAPY
     Route: 048
     Dates: start: 20150813
  7. BENZATROPINE MESILATE [Concomitant]
     Active Substance: BENZTROPINE
     Indication: CHEMOTHERAPY
  8. VELIPARIB [Suspect]
     Active Substance: VELIPARIB
     Indication: COLORECTAL CANCER
     Dosage: ON DAYS 2 THROUGH 5 OF EACH 14-DAY CYCLE
     Route: 048
     Dates: start: 20150811
  9. IRINOTECAN HYDROCHLORIDE. [Suspect]
     Active Substance: IRINOTECAN HYDROCHLORIDE
     Indication: COLORECTAL CANCER
     Dosage: ON DAY 1 OF EACH 14-DAY CYCLE
     Route: 042
     Dates: start: 20150813
  10. IMODIUM [Concomitant]
     Active Substance: LOPERAMIDE HYDROCHLORIDE
     Indication: DIARRHOEA
     Dates: start: 20150815
  11. VITAMIN D3 [Concomitant]
     Active Substance: CHOLECALCIFEROL
     Indication: VITAMIN SUPPLEMENTATION
     Route: 048
     Dates: start: 20100101
  12. COMPAZINE [Concomitant]
     Active Substance: PROCHLORPERAZINE MALEATE
     Indication: NAUSEA
     Dosage: EVERY 6 HOURS AS NEEDED
     Route: 048
     Dates: start: 20150814
  13. DEXAMETHASONE. [Concomitant]
     Active Substance: DEXAMETHASONE
     Indication: PREMEDICATION
     Dosage: 30 TO 60 MIN PRIOR TO CHEMOTHERAPY
     Route: 048
  14. 5-FLUOROURACIL                     /00098801/ [Suspect]
     Active Substance: FLUOROURACIL
     Indication: COLORECTAL CANCER
     Dosage: ON DAY 1 OF EACH 14-DAY CYCLE
     Route: 042
     Dates: start: 20150813
  15. PROBIOTICS                         /07325001/ [Concomitant]
     Active Substance: BIFIDOBACTERIUM LONGUM\LACTOBACILLUS ACIDOPHILUS\LACTOBACILLUS RHAMNOSUS
     Indication: SUPPLEMENTATION THERAPY
     Route: 048
     Dates: start: 20100101
  16. DILTIAZEM HCL CD [Concomitant]
     Active Substance: DILTIAZEM HYDROCHLORIDE
     Indication: ATRIAL FIBRILLATION
     Route: 048
     Dates: start: 20100101
  17. FOLINIC ACID [Concomitant]
     Active Substance: LEUCOVORIN
     Indication: COLORECTAL CANCER
     Dosage: DAY 1 OF 14-DAY CYCLE
     Route: 042
     Dates: start: 20150813
  18. 5-FLUOROURACIL                     /00098801/ [Suspect]
     Active Substance: FLUOROURACIL
     Indication: COLORECTAL CANCER
     Dosage: ON DAY 1 OF EACH 14-DAY CYCLE
     Route: 042
     Dates: start: 20150813
  19. ONDANSETRON HYDROCHLORIDE. [Concomitant]
     Active Substance: ONDANSETRON HYDROCHLORIDE
     Indication: CHEMOTHERAPY
  20. ALOE SPP. W/FOLIC ACID/LECITHIN/PYRIDOXINE HY [Concomitant]
     Indication: SUPPLEMENTATION THERAPY
     Dosage: 2 CAPSULE
     Dates: start: 20100101
  21. FUCOIDAN [Concomitant]
     Indication: SUPPLEMENTATION THERAPY
     Dosage: 1 TABLET
     Route: 048
     Dates: start: 20150701

REACTIONS (5)
  - Atrioventricular block second degree [Unknown]
  - Atrial flutter [Recovered/Resolved]
  - Diarrhoea [Recovered/Resolved]
  - Electrocardiogram QT prolonged [Unknown]
  - Bundle branch block left [Unknown]

NARRATIVE: CASE EVENT DATE: 20150921
